FAERS Safety Report 21540044 (Version 2)
Quarter: 2022Q4

REPORT INFORMATION
  Report Type: Spontaneous
  Country: CN (occurrence: CN)
  Receive Date: 20221102
  Receipt Date: 20221201
  Transmission Date: 20230112
  Serious: Yes (Other)
  Sender: FDA-Public Use
  Company Number: CN-GE HEALTHCARE-2022CSU007693

PATIENT
  Age: 57 Year
  Sex: Female

DRUGS (2)
  1. OMNISCAN [Suspect]
     Active Substance: GADODIAMIDE
     Indication: Scan with contrast
     Dosage: UNK UNK, SINGLE
     Route: 065
     Dates: start: 20221017, end: 20221017
  2. OMNISCAN [Suspect]
     Active Substance: GADODIAMIDE
     Indication: Salivary gland neoplasm

REACTIONS (3)
  - Musculoskeletal stiffness [Recovered/Resolved]
  - Syncope [Recovered/Resolved]
  - Rash [Recovered/Resolved]

NARRATIVE: CASE EVENT DATE: 20221017
